FAERS Safety Report 8015951-9 (Version None)
Quarter: 2011Q4

REPORT INFORMATION
  Report Type: 
  Country: None (occurrence: None)
  Receive Date: 20111230
  Receipt Date: 20111216
  Transmission Date: 20120403
  Serious: Yes (Death, Hospitalization, Other)
  Sender: FDA-Public Use
  Company Number: PH-SANOFI-AVENTIS-2011SA083053

PATIENT
  Age: 62 Year
  Sex: Male
  Weight: 70 kg

DRUGS (5)
  1. HYDROCORTISONE [Concomitant]
     Route: 042
  2. LANTUS [Suspect]
     Indication: TYPE 2 DIABETES MELLITUS
     Dosage: DOSE: 6 OR 8 UNITS ONCE DAILY
     Route: 058
     Dates: start: 20111125
  3. LANTUS [Suspect]
     Dosage: DOSE:4 UNIT(S)
     Route: 065
     Dates: end: 20111216
  4. GLIMEPIRIDE [Concomitant]
     Indication: TYPE 2 DIABETES MELLITUS
  5. METFORMIN HCL [Concomitant]
     Indication: TYPE 2 DIABETES MELLITUS

REACTIONS (6)
  - RENAL FAILURE ACUTE [None]
  - MULTI-ORGAN FAILURE [None]
  - BLOOD CREATININE DECREASED [None]
  - HYPOGLYCAEMIA [None]
  - HYPERGLYCAEMIA [None]
  - ASTHENIA [None]
